FAERS Safety Report 7829510-1 (Version None)
Quarter: 2011Q4

REPORT INFORMATION
  Report Type: 
  Country: None (occurrence: None)
  Receive Date: 20111020
  Receipt Date: 20111006
  Transmission Date: 20120403
  Serious: Yes (Death, Hospitalization)
  Sender: FDA-Public Use
  Company Number: DE-ROCHE-772572

PATIENT
  Age: 54 Year
  Sex: Male

DRUGS (20)
  1. MABTHERA [Suspect]
     Dosage: SINGLE ADMINISTRATION
     Dates: start: 20110504, end: 20110504
  2. MABTHERA [Suspect]
  3. PREDNISOLONE [Suspect]
     Indication: NON-HODGKIN'S LYMPHOMA
     Route: 065
  4. OXALIPLATIN [Suspect]
     Indication: NON-HODGKIN'S LYMPHOMA
     Route: 065
  5. DEXAMETHASONE [Suspect]
     Indication: NON-HODGKIN'S LYMPHOMA
     Route: 065
     Dates: start: 20110509
  6. IFOSFAMIDE [Suspect]
     Dates: start: 20110601
  7. IFOSFAMIDE [Suspect]
     Indication: NON-HODGKIN'S LYMPHOMA
     Route: 065
     Dates: start: 20110401
  8. MABTHERA [Suspect]
     Indication: NON-HODGKIN'S LYMPHOMA
     Route: 042
  9. DOXORUBICIN HYDROCHLORIDE [Suspect]
     Indication: NON-HODGKIN'S LYMPHOMA
     Route: 065
  10. CARBOPLATIN [Suspect]
     Indication: NON-HODGKIN'S LYMPHOMA
     Route: 065
     Dates: start: 20110401
  11. CYTARABINE [Suspect]
     Indication: NON-HODGKIN'S LYMPHOMA
     Route: 065
     Dates: start: 20110509
  12. CISPLATIN [Suspect]
     Indication: NON-HODGKIN'S LYMPHOMA
     Route: 065
     Dates: start: 20110509
  13. VINORELBINE TARTRATE [Suspect]
     Indication: NON-HODGKIN'S LYMPHOMA
     Route: 065
     Dates: start: 20110601
  14. ETOPOSIDE [Suspect]
     Indication: NON-HODGKIN'S LYMPHOMA
     Route: 065
  15. GEMCITABINE HYDROCHLORIDE [Suspect]
     Indication: NON-HODGKIN'S LYMPHOMA
     Route: 065
     Dates: start: 20110601
  16. CYCLOPHOSPHAMIDE [Suspect]
     Indication: NON-HODGKIN'S LYMPHOMA
     Route: 065
  17. VINCRISTINE [Suspect]
     Indication: NON-HODGKIN'S LYMPHOMA
     Route: 065
  18. CISPLATIN [Suspect]
     Dates: start: 20110801
  19. MABTHERA [Suspect]
  20. CYTARABINE [Suspect]
     Dates: start: 20110801

REACTIONS (4)
  - DISEASE PROGRESSION [None]
  - TUMOUR NECROSIS [None]
  - LYMPH NODE PAIN [None]
  - LYMPHADENOPATHY [None]
